FAERS Safety Report 5123180-1 (Version None)
Quarter: 2006Q4

REPORT INFORMATION
  Report Type: 
  Country: None (occurrence: None)
  Receive Date: 20061009
  Receipt Date: 20060928
  Transmission Date: 20070319
  Serious: Yes (Death, Other)
  Sender: FDA-Public Use
  Company Number: US-MERCK-0610USA00866

PATIENT
  Age: 62 Year
  Sex: Female
  Weight: 119 kg

DRUGS (3)
  1. PRIMAXIN [Suspect]
     Indication: LUNG INFECTION PSEUDOMONAL
     Route: 042
  2. TOBRAMYCIN [Suspect]
     Indication: LUNG INFECTION PSEUDOMONAL
     Route: 065
  3. VANCOMYCIN [Suspect]
     Indication: LUNG INFECTION PSEUDOMONAL
     Route: 042

REACTIONS (4)
  - DEATH [None]
  - HAEMODIALYSIS [None]
  - RENAL FAILURE ACUTE [None]
  - RENAL TUBULAR NECROSIS [None]
